FAERS Safety Report 10100381 (Version 2)
Quarter: 2014Q2

REPORT INFORMATION
  Report Type: Report from Study
  Country: US (occurrence: US)
  Receive Date: 20140423
  Receipt Date: 20140625
  Transmission Date: 20141212
  Serious: Yes (Hospitalization, Other)
  Sender: FDA-Public Use
  Company Number: PHEH2014US007891

PATIENT
  Sex: Female
  Weight: 55 kg

DRUGS (8)
  1. SANDOSTATIN LAR DEPOT [Suspect]
     Dosage: 30 MG, QMO
     Route: 030
     Dates: start: 20130819
  2. LOMOTIL [Concomitant]
     Dosage: UNK UKN, UNK
  3. MEGACE [Concomitant]
     Dosage: UNK UKN, UNK
  4. ANTIVERT [Concomitant]
     Dosage: UNK UKN, UNK
  5. TAMOXIFEN [Concomitant]
     Dosage: UNK UKN, UNK
  6. SUCRALFATE [Concomitant]
     Dosage: UNK UKN, UNK
  7. IMODIUM [Concomitant]
     Dosage: UNK UKN, UNK
  8. XIFAXAN [Concomitant]
     Dosage: UNK UKN, UNK

REACTIONS (4)
  - Abdominal pain [Recovered/Resolved]
  - Nausea [Unknown]
  - Vomiting [Unknown]
  - Adenocarcinoma [Unknown]
